FAERS Safety Report 24543372 (Version 7)
Quarter: 2024Q4

REPORT INFORMATION
  Report Type: Spontaneous
  Country: CA (occurrence: CA)
  Receive Date: 20241024
  Receipt Date: 20241226
  Transmission Date: 20250114
  Serious: Yes (Hospitalization, Other)
  Sender: CELLTRION
  Company Number: CA-PFIZER INC-202400276733

PATIENT

DRUGS (5)
  1. INFLECTRA [Suspect]
     Active Substance: INFLIXIMAB-DYYB
     Indication: Colitis ulcerative
     Dosage: 10 MG/KG, EVERY 7 WEEKS (ROUND TO NEAREST HUNDRED)
     Route: 042
     Dates: start: 20220421, end: 20230213
  2. INFLECTRA [Suspect]
     Active Substance: INFLIXIMAB-DYYB
     Dosage: 10 MG/KG, REINDUCTION WEEKS 0, 2, 6 MAINTENANCE Q 7 WEEKS
     Route: 042
     Dates: start: 20230720
  3. INFLECTRA [Suspect]
     Active Substance: INFLIXIMAB-DYYB
     Dosage: 10 MG/KG, WEEKS 0,2,6 THE Q 7 WEEKS
     Route: 042
     Dates: start: 20240311
  4. INFLECTRA [Suspect]
     Active Substance: INFLIXIMAB-DYYB
     Dosage: 10 MG/KG, WEEKS 0,2,6 THE Q 7 WEEKS
     Route: 042
     Dates: start: 20240812
  5. INFLECTRA [Suspect]
     Active Substance: INFLIXIMAB-DYYB
     Dosage: 1500 MG, AFTER 17 WEEKS (0 MG/KG, WEEKS 0,2,6 THE Q 7 WEEKS)
     Route: 042
     Dates: start: 20241209

REACTIONS (10)
  - Alcohol withdrawal syndrome [Unknown]
  - Rib fracture [Unknown]
  - Movement disorder [Recovering/Resolving]
  - Influenza [Recovering/Resolving]
  - Productive cough [Recovering/Resolving]
  - Infection [Recovering/Resolving]
  - Fall [Unknown]
  - Contusion [Unknown]
  - Pain [Not Recovered/Not Resolved]
  - Urinary tract infection [Recovered/Resolved]

NARRATIVE: CASE EVENT DATE: 20240101
